FAERS Safety Report 16539323 (Version 2)
Quarter: 2019Q3

REPORT INFORMATION
  Report Type: Spontaneous
  Country: BE (occurrence: BE)
  Receive Date: 20190708
  Receipt Date: 20190716
  Transmission Date: 20191004
  Serious: Yes (Other)
  Sender: FDA-Public Use
  Company Number: BE-PFIZER INC-2019289260

PATIENT
  Age: 80 Year
  Sex: Male

DRUGS (1)
  1. PANTOMED (PANTOPRAZOLE) [Suspect]
     Active Substance: PANTOPRAZOLE
     Dosage: 40 DF (20 MG) IN TOTAL
     Route: 048

REACTIONS (3)
  - Vertigo [Unknown]
  - Chest pain [Unknown]
  - Malaise [Unknown]
